FAERS Safety Report 24557534 (Version 3)
Quarter: 2024Q4

REPORT INFORMATION
  Report Type: Spontaneous
  Country: CN (occurrence: CN)
  Receive Date: 20241028
  Receipt Date: 20241119
  Transmission Date: 20250115
  Serious: Yes (Other)
  Sender: NOVARTIS
  Company Number: CN-002147023-NVSC2024CN208374

PATIENT
  Age: 70 Year
  Sex: Female

DRUGS (5)
  1. DIOVAN [Suspect]
     Active Substance: VALSARTAN
     Indication: Hypertension
     Dosage: 1 DOSAGE FORM, QD (ONE CAPSULE A DAY)
     Route: 048
  2. DIOVAN [Suspect]
     Active Substance: VALSARTAN
     Dosage: 1 DOSAGE FORM, QD (1 CAPSULE, 80MG)
     Route: 048
  3. DIOVAN [Suspect]
     Active Substance: VALSARTAN
     Dosage: UNK (HALF OF A CAPSULE, 80 MG)
     Route: 048
  4. DIOVAN [Suspect]
     Active Substance: VALSARTAN
     Dosage: 1 DOSAGE FORM (EVERY AFTERNOON)
     Route: 048
  5. NORVASC [Concomitant]
     Active Substance: AMLODIPINE BESYLATE
     Indication: Product used for unknown indication
     Dosage: UNK
     Route: 048

REACTIONS (10)
  - Diabetes mellitus [Not Recovered/Not Resolved]
  - Renal disorder [Not Recovered/Not Resolved]
  - Blood pressure inadequately controlled [Recovered/Resolved]
  - Blood pressure systolic decreased [Recovering/Resolving]
  - Blood pressure diastolic decreased [Recovering/Resolving]
  - Malaise [Not Recovered/Not Resolved]
  - Hypotension [Recovering/Resolving]
  - Hyperhidrosis [Recovering/Resolving]
  - Off label use [Unknown]
  - Wrong technique in product usage process [Unknown]
